FAERS Safety Report 20845644 (Version 5)
Quarter: 2022Q4

REPORT INFORMATION
  Report Type: Report from Study
  Country: CO (occurrence: None)
  Receive Date: 20220518
  Receipt Date: 20221010
  Transmission Date: 20230112
  Serious: Yes (Death, Hospitalization)
  Sender: FDA-Public Use
  Company Number: CO-ROCHE-3092962

PATIENT
  Age: 65 Year
  Sex: Male
  Weight: 94.1 kg

DRUGS (7)
  1. ATEZOLIZUMAB [Suspect]
     Active Substance: ATEZOLIZUMAB
     Indication: Malignant neoplasm of unknown primary site
     Dosage: DATE OF LAST DOSE OF TREATMENT STUDY DRUG 1 PRIOR TO SAE/AESI ONSET 11/APR/2022 (1200 MG)
     Route: 041
     Dates: start: 20220411
  2. CISPLATIN [Suspect]
     Active Substance: CISPLATIN
     Indication: Malignant neoplasm of unknown primary site
     Dosage: DOSE: 60-75 MG/M2?DATE OF LAST DOSE OF INDUCTION STUDY DRUG: 02/MAR/2022 (159.8 MG)
     Route: 042
     Dates: start: 20220119
  3. CISPLATIN [Suspect]
     Active Substance: CISPLATIN
     Dosage: DOSE OF LAST TREATMENT STUDY DRUG 2 ADMINISTERED PRIOR TO SAE/AESI ONSET IS 165 MG
     Route: 042
     Dates: start: 20220411
  4. GEMCITABINE [Suspect]
     Active Substance: GEMCITABINE
     Indication: Malignant neoplasm of unknown primary site
     Dosage: DATE OF LAST DOSE OF INDUCTION STUDY DRUG:- 08/MAR/2022 AT 2090 MG
     Route: 042
     Dates: start: 20220119
  5. GEMCITABINE [Suspect]
     Active Substance: GEMCITABINE
     Dosage: DOSE OF LAST TREATMENT STUDY DRUG 3 ADMINISTERED PRIOR TO SAE/AESI ONSET IS 2190 MG?DATE OF LAST DOS
     Route: 042
     Dates: start: 20220411
  6. SPIRONOLACTONE [Concomitant]
     Active Substance: SPIRONOLACTONE
     Indication: Prophylaxis
     Route: 048
     Dates: start: 20220401, end: 20220502
  7. PROPRANOLOL [Concomitant]
     Active Substance: PROPRANOLOL HYDROCHLORIDE
     Indication: Prophylaxis
     Route: 048
     Dates: start: 20220405, end: 20220502

REACTIONS (1)
  - Myasthenic syndrome [Fatal]

NARRATIVE: CASE EVENT DATE: 20220430
